FAERS Safety Report 22116997 (Version 1)
Quarter: 2023Q1

REPORT INFORMATION
  Report Type: Spontaneous
  Country: IN (occurrence: IN)
  Receive Date: 20230320
  Receipt Date: 20230320
  Transmission Date: 20230417
  Serious: Yes (Death)
  Sender: FDA-Public Use
  Company Number: IN-WOCKHARDT LIMITED-2023WLD000032

PATIENT
  Age: 14 Year
  Sex: Female

DRUGS (1)
  1. ONDANSETRON [Suspect]
     Active Substance: ONDANSETRON
     Indication: Vomiting
     Dosage: 4 MILLIGRAM
     Route: 030

REACTIONS (3)
  - Ventricular tachycardia [Fatal]
  - Ventricular fibrillation [Fatal]
  - Cardiogenic shock [Fatal]
